FAERS Safety Report 5810087-7 (Version None)
Quarter: 2008Q3

REPORT INFORMATION
  Report Type: 
  Country: None (occurrence: None)
  Receive Date: 20080715
  Receipt Date: 20080710
  Transmission Date: 20090109
  Serious: Yes (Other)
  Sender: FDA-Public Use
  Company Number: D0057546A

PATIENT
  Age: 19 Year
  Sex: Female

DRUGS (7)
  1. FLUTIDE FORTE [Suspect]
     Route: 055
  2. SINGULAIR [Suspect]
     Route: 065
  3. SALMETEROL [Suspect]
     Route: 055
  4. ALBUTEROL [Suspect]
     Route: 055
  5. DESLORATADINE [Suspect]
     Route: 065
  6. FORMOTEROL FUMARATE [Suspect]
     Route: 065
  7. PREDNISOLONE [Concomitant]
     Route: 065
     Dates: end: 20080501

REACTIONS (3)
  - ASTHMA [None]
  - DRUG INEFFECTIVE [None]
  - DYSPNOEA [None]
